FAERS Safety Report 5445780-1 (Version None)
Quarter: 2007Q3

REPORT INFORMATION
  Report Type: 
  Country: None (occurrence: None)
  Receive Date: 20070904
  Receipt Date: 20070816
  Transmission Date: 20080115
  Serious: Yes (Other)
  Sender: FDA-Public Use
  Company Number: 2007RR-09431

PATIENT
  Age: 47 Year
  Sex: Male

DRUGS (4)
  1. CIPROFLOXACIN 500 MG FILM-COATED TABLETS (CIPROFLOXACIN ) UNKNOWN [Suspect]
     Indication: EPIDIDYMAL INFECTION
     Dosage: 500 MG, BID
  2. CLOZAPINE [Suspect]
     Indication: SCHIZOPHRENIA, PARANOID TYPE
     Dosage: 750 MG, QD
  3. AMISULPRIDE (AMISULPRIDE) [Concomitant]
  4. LORAZEPAM [Concomitant]

REACTIONS (2)
  - ANTIPSYCHOTIC DRUG LEVEL ABOVE THERAPEUTIC [None]
  - DRUG INTERACTION [None]
